FAERS Safety Report 4325351-0 (Version None)
Quarter: 2004Q1

REPORT INFORMATION
  Report Type: 
  Country: None (occurrence: None)
  Receive Date: 20040323
  Receipt Date: 20040310
  Transmission Date: 20041129
  Serious: Yes (Hospitalization)
  Sender: FDA-Public Use
  Company Number: 2004-01018

PATIENT
  Age: 76 Year
  Sex: Female

DRUGS (3)
  1. METHYLPREDNISOLONE [Suspect]
     Indication: INTERVERTEBRAL DISC PROTRUSION
     Dosage: 32 MG, DAILY, ORAL
     Route: 048
  2. METHYLPREDNISOLONE [Suspect]
     Indication: SPONDYLOSIS
     Dosage: 32 MG, DAILY, ORAL
     Route: 048
  3. RANITIDINE [Concomitant]

REACTIONS (1)
  - DIVERTICULAR PERFORATION [None]
